FAERS Safety Report 8576556-4 (Version None)
Quarter: 2012Q3

REPORT INFORMATION
  Report Type: 
  Country: None (occurrence: None)
  Receive Date: 20120807
  Receipt Date: 20120730
  Transmission Date: 20120928
  Serious: Yes (Other)
  Sender: FDA-Public Use
  Company Number: TH-JNJFOC-20120802593

PATIENT
  Age: 71 Year
  Sex: Male

DRUGS (6)
  1. REPARIL [Concomitant]
  2. ZINACEF [Concomitant]
     Route: 042
  3. COZAAR [Concomitant]
  4. XARELTO [Suspect]
     Indication: KNEE OPERATION
     Dosage: ONCE
     Route: 048
     Dates: start: 20120727, end: 20120728
  5. AMLODIPINE [Concomitant]
  6. XARELTO [Suspect]
     Indication: THROMBOSIS PROPHYLAXIS
     Dosage: ONCE
     Route: 048
     Dates: start: 20120727, end: 20120728

REACTIONS (1)
  - HAEMATOCRIT DECREASED [None]
